FAERS Safety Report 8989161 (Version 1)
Quarter: 2012Q4

REPORT INFORMATION
  Report Type: 
  Country: US (occurrence: US)
  Receive Date: 20121228
  Receipt Date: 20121228
  Transmission Date: 20130627
  Serious: Yes (Other)
  Sender: FDA-Public Use
  Company Number: US-ASTELLAS-2012US012648

PATIENT
  Age: 84 Year
  Sex: Male
  Weight: 64 kg

DRUGS (2)
  1. XTANDI [Suspect]
     Indication: PROSTATE CANCER
     Dosage: 160 mg, UID/QD
     Route: 048
     Dates: start: 20121201
  2. ARANESP [Concomitant]
     Indication: ANAEMIA
     Dosage: 300 ug, prn
     Route: 058
     Dates: start: 20120801

REACTIONS (5)
  - Aspiration [Unknown]
  - Product size issue [Unknown]
  - Foreign body [Unknown]
  - Cough [Unknown]
  - Dyspnoea [Unknown]
